FAERS Safety Report 4635349-0 (Version None)
Quarter: 2005Q2

REPORT INFORMATION
  Report Type: 
  Country: None (occurrence: None)
  Receive Date: 20050411
  Receipt Date: 20050324
  Transmission Date: 20051028
  Serious: Yes (Death, Hospitalization)
  Sender: FDA-Public Use
  Company Number: MEDI-0002999

PATIENT
  Age: 8 Month
  Sex: Male
  Weight: 9.5 kg

DRUGS (10)
  1. SYNAGIS [Suspect]
     Indication: ANTIVIRAL PROPHYLAXIS
     Dosage: SEE IMAGE
     Route: 030
     Dates: start: 20041204, end: 20041204
  2. SYNAGIS [Suspect]
     Indication: ANTIVIRAL PROPHYLAXIS
     Dosage: SEE IMAGE
     Route: 030
     Dates: start: 20050111, end: 20050111
  3. LASIX [Concomitant]
  4. THEOPHYLLINE [Concomitant]
  5. ALDACTONE [Concomitant]
  6. CARVEDILOL [Concomitant]
  7. ESIDRIX [Concomitant]
  8. CLONIDINE [Concomitant]
  9. PHENOBARBITAL TAB [Concomitant]
  10. ACETYLSALICYLIC ACID SRT [Concomitant]

REACTIONS (5)
  - OBSTRUCTIVE AIRWAYS DISORDER [None]
  - PNEUMONIA [None]
  - RESPIRATORY FAILURE [None]
  - RESPIRATORY SYNCYTIAL VIRUS INFECTION [None]
  - SEPTIC SHOCK [None]
